FAERS Safety Report 14741556 (Version 3)
Quarter: 2018Q2

REPORT INFORMATION
  Report Type: Spontaneous
  Country: US (occurrence: US)
  Receive Date: 20180410
  Receipt Date: 20180605
  Transmission Date: 20180711
  Serious: Yes (Hospitalization)
  Sender: FDA-Public Use
  Company Number: US-MALLINCKRODT-T201801360

PATIENT
  Sex: Male

DRUGS (3)
  1. H.P. ACTHAR [Suspect]
     Active Substance: CORTICOTROPIN
     Dosage: 40 UNITS / .5 ML, 2 TIMES PER WEEK (SUNDAYS AND WEDNESDAYS)
     Route: 058
     Dates: start: 20160505
  2. PREDNISONE. [Concomitant]
     Active Substance: PREDNISONE
     Indication: PRODUCT USED FOR UNKNOWN INDICATION
     Dosage: UNK
     Route: 065
  3. H.P. ACTHAR [Suspect]
     Active Substance: CORTICOTROPIN
     Indication: SARCOIDOSIS
     Dosage: 80 UNITS( 1ML), TWICE WEEKLY
     Route: 058
     Dates: start: 20160216

REACTIONS (9)
  - Malaise [Unknown]
  - Fall [Unknown]
  - Arthralgia [Not Recovered/Not Resolved]
  - Sepsis [Not Recovered/Not Resolved]
  - Dyspnoea [Recovering/Resolving]
  - Feeling cold [Unknown]
  - Joint stiffness [Not Recovered/Not Resolved]
  - Blood glucose increased [Unknown]
  - Atrial fibrillation [Not Recovered/Not Resolved]
